FAERS Safety Report 7006550-6 (Version None)
Quarter: 2010Q3

REPORT INFORMATION
  Report Type: 
  Country: None (occurrence: None)
  Receive Date: 20100921
  Receipt Date: 20080527
  Transmission Date: 20110219
  Serious: No
  Sender: FDA-Public Use
  Company Number: US-WYE-H03622508

PATIENT
  Sex: Male
  Weight: 66.74 kg

DRUGS (3)
  1. BENEFIX [Suspect]
     Dosage: ~4500 - 5000 UNITS-THE PATIENT SPECIFICALLY REQUESTS 9 X 500 UNIT VIALS
     Route: 042
     Dates: start: 20070801
  2. BENADRYL [Concomitant]
  3. TYLENOL [Concomitant]

REACTIONS (2)
  - INJECTION SITE PAIN [None]
  - WRONG TECHNIQUE IN DRUG USAGE PROCESS [None]
